FAERS Safety Report 5136332-1 (Version None)
Quarter: 2006Q4

REPORT INFORMATION
  Report Type: 
  Country: None (occurrence: None)
  Receive Date: 20061027
  Receipt Date: 20061018
  Transmission Date: 20070319
  Serious: Yes (Death)
  Sender: FDA-Public Use
  Company Number: US-ROCHE-468055

PATIENT
  Age: 87 Year
  Sex: Male

DRUGS (5)
  1. VESANOID [Suspect]
     Indication: ACUTE PROMYELOCYTIC LEUKAEMIA
     Dosage: DOSING REGIMEN REPORTED AS ^TWO WEEKS ON, TWO OFF^.
     Route: 048
     Dates: start: 20040318, end: 20061006
  2. CARDIZEM [Concomitant]
     Dates: end: 20061006
  3. POTASSIUM ACETATE [Concomitant]
     Dates: end: 20061006
  4. DYAZIDE [Concomitant]
     Dates: end: 20061006
  5. HUMULIN 70/30 [Concomitant]
     Dates: end: 20061006

REACTIONS (1)
  - ACUTE PROMYELOCYTIC LEUKAEMIA [None]
